FAERS Safety Report 9644190 (Version 3)
Quarter: 2014Q1

REPORT INFORMATION
  Report Type: Spontaneous
  Country: US (occurrence: US)
  Receive Date: 20131024
  Receipt Date: 20140108
  Transmission Date: 20141002
  Serious: Yes (Other)
  Sender: FDA-Public Use
  Company Number: US-RB-059797-13

PATIENT
  Sex: Female

DRUGS (8)
  1. BUPRENORPHINE UNSPECIFIED [Suspect]
     Indication: DRUG DEPENDENCE
     Route: 065
  2. ALBUTEROL [Suspect]
     Indication: WHEEZING
     Dosage: DOSING DETAILS UNKNOWN
     Route: 065
  3. CLONAZEPAM [Suspect]
     Indication: ANXIETY
     Route: 065
  4. GABAPENTIN [Suspect]
     Indication: BACK PAIN
     Route: 065
  5. HCTZ [Suspect]
     Indication: OEDEMA
     Route: 065
  6. OMEPRAZOLE [Suspect]
     Indication: GASTROOESOPHAGEAL REFLUX DISEASE
     Route: 065
  7. PRENATAL VITAMINS [Suspect]
     Indication: PRODUCT USED FOR UNKNOWN INDICATION
     Dosage: DOSING DETAILS UNKNOWN
     Route: 065
  8. NICOTINE [Concomitant]
     Indication: PRODUCT USED FOR UNKNOWN INDICATION
     Dosage: 20 CIGARETTES DAILY
     Route: 055

REACTIONS (2)
  - Maternal exposure during pregnancy [Recovered/Resolved]
  - Umbilical cord around neck [Recovered/Resolved]
